FAERS Safety Report 6773156-3 (Version None)
Quarter: 2010Q2

REPORT INFORMATION
  Report Type: 
  Country: None (occurrence: None)
  Receive Date: 20100616
  Receipt Date: 20100610
  Transmission Date: 20101027
  Serious: Yes (Hospitalization)
  Sender: FDA-Public Use
  Company Number: US-GILEAD-2010-0029715

PATIENT
  Sex: Female
  Weight: 87.7 kg

DRUGS (9)
  1. LETAIRIS [Suspect]
     Indication: PULMONARY ARTERIAL HYPERTENSION
     Route: 048
     Dates: start: 20080903
  2. REVATIO [Concomitant]
  3. LASIX [Concomitant]
  4. DILTIAZEM [Concomitant]
  5. MUCINEX [Concomitant]
  6. PREVACID [Concomitant]
  7. XANAX [Concomitant]
  8. K-DUR [Concomitant]
  9. FERROUS SULFATE TAB [Concomitant]

REACTIONS (1)
  - UNEVALUABLE EVENT [None]
